FAERS Safety Report 10176479 (Version 2)
Quarter: 2014Q2

REPORT INFORMATION
  Report Type: Spontaneous
  Country: JP (occurrence: None)
  Receive Date: 20140514
  Receipt Date: 20140602
  Transmission Date: 20141212
  Serious: Yes (Other)
  Sender: FDA-Public Use
  Company Number: 2014-JP-005564

PATIENT
  Age: 16 Year
  Sex: Female

DRUGS (5)
  1. ERWINASE [Suspect]
     Indication: B PRECURSOR TYPE ACUTE LEUKAEMIA
     Dosage: ON DAYS 17-20 AND 23-26
  2. VINCRISTINE (VINCRISTINE SULFATE) [Suspect]
     Indication: ACUTE LYMPHOCYTIC LEUKAEMIA
     Dosage: 2 MG/M2, ON DAYS 1,8,15 AND 22
  3. DAUNORUBICIN (DAUNORUBICIN HYDROCHLORIDE) [Concomitant]
  4. PREDNISOLONE (PREDNISOLONE ACETATE) [Concomitant]
  5. METHOTREXATE (METHOTREXATE SODIUM) [Concomitant]

REACTIONS (11)
  - Critical illness polyneuropathy [None]
  - Sepsis [None]
  - Bacillus test positive [None]
  - Febrile neutropenia [None]
  - Disorientation [None]
  - Meningism [None]
  - CSF protein increased [None]
  - CSF cell count increased [None]
  - Brain abscess [None]
  - Dysstasia [None]
  - Gait disturbance [None]
